FAERS Safety Report 8180522-0 (Version None)
Quarter: 2012Q1

REPORT INFORMATION
  Report Type: 
  Country: None (occurrence: None)
  Receive Date: 20120302
  Receipt Date: 20120229
  Transmission Date: 20120608
  Serious: Yes (Other)
  Sender: FDA-Public Use
  Company Number: US-ROCHE-1015931

PATIENT
  Sex: Female
  Weight: 167 kg

DRUGS (1)
  1. ACCUTANE [Suspect]
     Indication: ACNE
     Route: 065
     Dates: start: 20020401, end: 20020701

REACTIONS (4)
  - COLITIS ULCERATIVE [None]
  - INJURY [None]
  - DEPRESSION [None]
  - FEMALE GENITAL TRACT FISTULA [None]
